FAERS Safety Report 15231385 (Version 3)
Quarter: 2019Q3

REPORT INFORMATION
  Report Type: Spontaneous
  Country: US (occurrence: US)
  Receive Date: 20180802
  Receipt Date: 20190703
  Transmission Date: 20191004
  Serious: Yes (Other)
  Sender: FDA-Public Use
  Company Number: US-PFIZER INC-2018309551

PATIENT
  Age: 24 Year
  Sex: Female

DRUGS (1)
  1. ATROPINE SULFATE. [Suspect]
     Active Substance: ATROPINE SULFATE
     Dosage: UNK

REACTIONS (2)
  - Sinus arrest [Unknown]
  - Drug hypersensitivity [Unknown]
